FAERS Safety Report 21630819 (Version 2)
Quarter: 2022Q4

REPORT INFORMATION
  Report Type: Spontaneous
  Country: PT (occurrence: PT)
  Receive Date: 20221123
  Receipt Date: 20221216
  Transmission Date: 20230112
  Serious: Yes (Other)
  Sender: FDA-Public Use
  Company Number: PT-SIDEPROD-2022-0089

PATIENT
  Age: 23 Year
  Sex: Male

DRUGS (1)
  1. ACYCLOVIR [Suspect]
     Active Substance: ACYCLOVIR
     Indication: Meningitis viral
     Dosage: 15 MILLIGRAM/KILOGRAM, 3 TIMES A DAY
     Route: 042

REACTIONS (1)
  - Acute kidney injury [Recovered/Resolved]
